FAERS Safety Report 16223713 (Version 1)
Quarter: 2019Q2

REPORT INFORMATION
  Report Type: Spontaneous
  Country: US (occurrence: US)
  Receive Date: 20190421
  Receipt Date: 20190421
  Transmission Date: 20190711
  Serious: No
  Sender: FDA-Public Use
  Company Number: None

PATIENT
  Age: 57 Year
  Sex: Female
  Weight: 81.9 kg

DRUGS (5)
  1. PSORIASIS CONTROL [Suspect]
     Active Substance: SALICYLIC ACID
     Indication: PSORIASIS
     Dosage: ?          QUANTITY:6 APPLICATION;?
     Route: 061
     Dates: start: 20190326, end: 20190331
  2. TRIDERMA SOOTHING SHAMPOO [Suspect]
     Active Substance: SALICYLIC ACID
     Indication: PSORIASIS
     Dosage: ?          QUANTITY:5 DROP(S);?
     Route: 061
     Dates: start: 20190326, end: 20190327
  3. MAGNESIUM OROTATE [Concomitant]
  4. CALCIUM [Concomitant]
     Active Substance: CALCIUM
  5. IBUPROFEN. [Concomitant]
     Active Substance: IBUPROFEN

REACTIONS (3)
  - Product outer packaging issue [None]
  - Product use complaint [None]
  - Wrong product administered [None]

NARRATIVE: CASE EVENT DATE: 20190326
